FAERS Safety Report 20029296 (Version 1)
Quarter: 2021Q4

REPORT INFORMATION
  Report Type: Spontaneous
  Country: US (occurrence: US)
  Receive Date: 20211103
  Receipt Date: 20211103
  Transmission Date: 20220303
  Serious: Yes (Death, Life-Threatening, Other)
  Sender: FDA-Public Use
  Company Number: US-AMGEN-USASP2021169832

PATIENT

DRUGS (5)
  1. FILGRASTIM [Suspect]
     Active Substance: FILGRASTIM
     Indication: Neutropenia
     Dosage: UNK
     Route: 065
  2. EPOETIN ALFA [Suspect]
     Active Substance: ERYTHROPOIETIN
     Indication: Anaemia
     Dosage: UNK
     Route: 065
  3. CARBOPLATIN [Concomitant]
     Active Substance: CARBOPLATIN
     Indication: Ovarian cancer
     Dosage: UNK (^AREA-UNDER-THE-CURVE^ (AUC) OF SIX)
     Route: 042
  4. PACLITAXEL [Concomitant]
     Active Substance: PACLITAXEL
     Dosage: 175 MICROGRAM/SQ. METER
     Route: 042
  5. BEVACIZUMAB [Concomitant]
     Active Substance: BEVACIZUMAB
     Dosage: 15 MILLIGRAM/KILOGRAM

REACTIONS (7)
  - Death [Fatal]
  - Embolism venous [Unknown]
  - Embolism [Unknown]
  - Adverse event [Unknown]
  - Febrile neutropenia [Unknown]
  - Anaemia [Unknown]
  - Ovarian cancer [Unknown]
